FAERS Safety Report 5528045-9 (Version None)
Quarter: 2007Q4

REPORT INFORMATION
  Report Type: 
  Country: None (occurrence: None)
  Receive Date: 20071126
  Receipt Date: 20071126
  Transmission Date: 20080405
  Serious: Yes (Other)
  Sender: FDA-Public Use
  Company Number: None

PATIENT
  Age: 59 Year
  Sex: Female
  Weight: 64.8644 kg

DRUGS (2)
  1. NEXIUM [Suspect]
     Indication: GASTRITIS
     Dosage: ONE CAPSULE DAILY; PT BEEN ON MED FOR 4 TO 5 YEARS AND IT HAS BEEN WORKING
  2. NEXIUM [Suspect]
     Indication: GASTROOESOPHAGEAL REFLUX DISEASE
     Dosage: ONE CAPSULE DAILY; PT BEEN ON MED FOR 4 TO 5 YEARS AND IT HAS BEEN WORKING

REACTIONS (6)
  - ABDOMINAL DISCOMFORT [None]
  - ABDOMINAL DISTENSION [None]
  - DISEASE RECURRENCE [None]
  - FLATULENCE [None]
  - GASTROOESOPHAGEAL REFLUX DISEASE [None]
  - PHARMACEUTICAL PRODUCT COMPLAINT [None]
